FAERS Safety Report 5945750-0 (Version None)
Quarter: 2008Q4

REPORT INFORMATION
  Report Type: 
  Country: None (occurrence: None)
  Receive Date: 20081104
  Receipt Date: 20081029
  Transmission Date: 20090506
  Serious: Yes (Death)
  Sender: FDA-Public Use
  Company Number: 2008SP022113

PATIENT
  Sex: Female

DRUGS (2)
  1. INTRON A [Suspect]
     Indication: OFF LABEL USE
  2. INTRON A [Suspect]
     Indication: PANENCEPHALITIS

REACTIONS (1)
  - DISEASE COMPLICATION [None]
